FAERS Safety Report 5670136-6 (Version None)
Quarter: 2008Q1

REPORT INFORMATION
  Report Type: 
  Country: None (occurrence: None)
  Receive Date: 20080312
  Receipt Date: 20080304
  Transmission Date: 20080703
  Serious: Yes (Death, Disabling)
  Sender: FDA-Public Use
  Company Number: 167-C5013-07061027

PATIENT
  Age: 49 Year
  Sex: Female
  Weight: 55 kg

DRUGS (19)
  1. CC-5013  (LENALIDOMIDE)  (CAPSULES) [Suspect]
     Indication: NEURODERMATITIS
     Dosage: 10 MG, DAILY, ORAL; 20-15MG, DAILY, ORAL; 10-15MG, DAILY, ORAL;  25 MG, DAILY FOR 21 DAYS, ORAL
     Route: 048
     Dates: start: 20040430, end: 20040523
  2. CC-5013  (LENALIDOMIDE)  (CAPSULES) [Suspect]
     Indication: NEURODERMATITIS
     Dosage: 10 MG, DAILY, ORAL; 20-15MG, DAILY, ORAL; 10-15MG, DAILY, ORAL;  25 MG, DAILY FOR 21 DAYS, ORAL
     Route: 048
     Dates: start: 20040528, end: 20040601
  3. CC-5013  (LENALIDOMIDE)  (CAPSULES) [Suspect]
     Indication: NEURODERMATITIS
     Dosage: 10 MG, DAILY, ORAL; 20-15MG, DAILY, ORAL; 10-15MG, DAILY, ORAL;  25 MG, DAILY FOR 21 DAYS, ORAL
     Route: 048
     Dates: start: 20040625, end: 20040801
  4. CC-5013  (LENALIDOMIDE)  (CAPSULES) [Suspect]
     Indication: NEURODERMATITIS
     Dosage: 10 MG, DAILY, ORAL; 20-15MG, DAILY, ORAL; 10-15MG, DAILY, ORAL;  25 MG, DAILY FOR 21 DAYS, ORAL
     Route: 048
     Dates: start: 20040813, end: 20041101
  5. CC-5013  (LENALIDOMIDE)  (CAPSULES) [Suspect]
     Indication: NEURODERMATITIS
     Dosage: 10 MG, DAILY, ORAL; 20-15MG, DAILY, ORAL; 10-15MG, DAILY, ORAL;  25 MG, DAILY FOR 21 DAYS, ORAL
     Route: 048
     Dates: start: 20041126, end: 20060901
  6. CC-5013  (LENALIDOMIDE)  (CAPSULES) [Suspect]
     Indication: NEURODERMATITIS
     Dosage: 10 MG, DAILY, ORAL; 20-15MG, DAILY, ORAL; 10-15MG, DAILY, ORAL;  25 MG, DAILY FOR 21 DAYS, ORAL
     Route: 048
     Dates: start: 20061122, end: 20070101
  7. CC-5013  (LENALIDOMIDE)  (CAPSULES) [Suspect]
     Indication: NEURODERMATITIS
     Dosage: 10 MG, DAILY, ORAL; 20-15MG, DAILY, ORAL; 10-15MG, DAILY, ORAL;  25 MG, DAILY FOR 21 DAYS, ORAL
     Route: 048
     Dates: start: 20070504, end: 20070801
  8. VITAMIN B6 [Concomitant]
  9. EFFEXOR [Concomitant]
  10. ZIMOVANE        (ZOPICLONE) [Concomitant]
  11. AMOXICILLIN [Concomitant]
  12. DAPSONE [Concomitant]
  13. ERYTHROMYCIN [Concomitant]
  14. LANSOPRAZOLE [Concomitant]
  15. DOVONEX       (CALCIPOTRIOL) [Concomitant]
  16. THALIDOMIDE    (THALIIOMIDE) [Concomitant]
  17. PYRIDOXINE      (PYRIDOXINE) [Concomitant]
  18. FLOXACILLIN SODIUM [Concomitant]
  19. OXYTETRACYCLINE [Concomitant]

REACTIONS (7)
  - ADVERSE DRUG REACTION [None]
  - COMPLETED SUICIDE [None]
  - CONDITION AGGRAVATED [None]
  - DEPRESSION [None]
  - HEADACHE [None]
  - MENOPAUSAL SYMPTOMS [None]
  - NEUROPATHY PERIPHERAL [None]
